FAERS Safety Report 5897942-7 (Version None)
Quarter: 2008Q3

REPORT INFORMATION
  Report Type: 
  Country: None (occurrence: None)
  Receive Date: 20080925
  Receipt Date: 20080919
  Transmission Date: 20090109
  Serious: Yes (Hospitalization, Other)
  Sender: FDA-Public Use
  Company Number: A0748377A

PATIENT
  Sex: Male

DRUGS (2)
  1. REQUIP XL [Suspect]
     Indication: PARKINSON'S DISEASE
     Dosage: 12MG PER DAY
     Route: 048
  2. L-DOPA [Concomitant]

REACTIONS (2)
  - DYSKINESIA [None]
  - DYSPHAGIA [None]
